FAERS Safety Report 5586981-1 (Version None)
Quarter: 2008Q1

REPORT INFORMATION
  Report Type: 
  Country: None (occurrence: None)
  Receive Date: 20080107
  Receipt Date: 20071228
  Transmission Date: 20080703
  Serious: Yes (Other)
  Sender: FDA-Public Use
  Company Number: 08H-153-0313638-00

PATIENT
  Age: 53 Year
  Sex: Female
  Weight: 56 kg

DRUGS (4)
  1. PENTOTHAL [Suspect]
     Indication: INDUCTION OF ANAESTHESIA
     Dosage: 275 MG, INTRAVENOUS
     Route: 042
  2. FENTANYL [Suspect]
     Indication: INDUCTION OF ANAESTHESIA
     Dosage: 150 MCG,
  3. ROCURONIUM (ROCURONIUM) [Suspect]
     Indication: INDUCTION OF ANAESTHESIA
     Dosage: 50 MG,
  4. SEVOFLURANE [Suspect]
     Indication: MAINTENANCE OF ANAESTHESIA

REACTIONS (5)
  - OPERATIVE HAEMORRHAGE [None]
  - PAROTID GLAND ENLARGEMENT [None]
  - PAROTITIS [None]
  - POST PROCEDURAL COMPLICATION [None]
  - PROCEDURAL COMPLICATION [None]
